FAERS Safety Report 11847041 (Version 1)
Quarter: 2015Q4

REPORT INFORMATION
  Report Type: Spontaneous
  Country: US (occurrence: US)
  Receive Date: 20151217
  Receipt Date: 20151217
  Transmission Date: 20160305
  Serious: No
  Sender: FDA-Public Use
  Company Number: US-ROCHE-1516075

PATIENT
  Sex: Male

DRUGS (6)
  1. TAMIFLU [Suspect]
     Active Substance: OSELTAMIVIR PHOSPHATE
     Indication: PAIN
  2. TAMIFLU [Suspect]
     Active Substance: OSELTAMIVIR PHOSPHATE
     Indication: PAIN
  3. TAMIFLU [Suspect]
     Active Substance: OSELTAMIVIR PHOSPHATE
     Indication: INFLUENZA LIKE ILLNESS
     Dosage: ONE
     Route: 065
     Dates: start: 20141126, end: 20141126
  4. TAMIFLU [Suspect]
     Active Substance: OSELTAMIVIR PHOSPHATE
     Indication: PYREXIA
  5. GOLDEN SEAL [Concomitant]
     Active Substance: GOLDENSEAL
     Indication: INFECTION
  6. LOVASTATIN. [Concomitant]
     Active Substance: LOVASTATIN
     Dosage: OFF AND ON FOR SEVERAL YEARS
     Route: 065

REACTIONS (4)
  - Drug ineffective [Unknown]
  - Asthenia [Recovered/Resolved]
  - Somnolence [Recovered/Resolved]
  - Urinary incontinence [Recovered/Resolved]
